FAERS Safety Report 10855055 (Version 1)
Quarter: 2015Q1

REPORT INFORMATION
  Report Type: Spontaneous
  Country: US (occurrence: None)
  Receive Date: 20150218
  Receipt Date: 20150218
  Transmission Date: 20150721
  Serious: Yes (Disabling)
  Sender: FDA-Public Use
  Company Number: None

PATIENT
  Age: 26 Year
  Sex: Female
  Weight: 58.97 kg

DRUGS (1)
  1. CIPROFLOXACIN. [Suspect]
     Active Substance: CIPROFLOXACIN
     Dosage: 1 PILL

REACTIONS (18)
  - Pain [None]
  - Impaired driving ability [None]
  - Bedridden [None]
  - Nerve injury [None]
  - Scar [None]
  - Muscle atrophy [None]
  - Chondropathy [None]
  - Seizure [None]
  - Depression [None]
  - Muscle twitching [None]
  - Muscle contractions involuntary [None]
  - Fibromyalgia [None]
  - Musculoskeletal stiffness [None]
  - Arthralgia [None]
  - Tendon disorder [None]
  - Cognitive disorder [None]
  - Swelling [None]
  - Feeling abnormal [None]

NARRATIVE: CASE EVENT DATE: 20130813
